FAERS Safety Report 17209451 (Version 1)
Quarter: 2019Q4

REPORT INFORMATION
  Report Type: Report from Study
  Country: FR (occurrence: FR)
  Receive Date: 20191227
  Receipt Date: 20191227
  Transmission Date: 20200122
  Serious: Yes (Hospitalization)
  Sender: FDA-Public Use
  Company Number: FR-MYLANLABS-2019M1127765

PATIENT
  Age: 48 Year
  Sex: Male
  Weight: 59.9 kg

DRUGS (15)
  1. IRINOTECAN [Suspect]
     Active Substance: IRINOTECAN
     Dosage: 340 MILLIGRAM, CYCLE
     Route: 042
     Dates: start: 20160511, end: 20160511
  2. ZOPHREN                            /00955301/ [Concomitant]
     Active Substance: ONDANSETRON
     Indication: VOMITING
     Dosage: UNK
     Dates: start: 20160511, end: 20170619
  3. EMEND [Concomitant]
     Active Substance: APREPITANT
     Indication: NAUSEA
     Dosage: UNK
     Dates: start: 20160511, end: 20170619
  4. FLUOROURACIL. [Suspect]
     Active Substance: FLUOROURACIL
     Indication: COLORECTAL CANCER METASTATIC
     Dosage: UNK, CYCLE (UNK UNK, QCY)
     Route: 042
     Dates: start: 20160413, end: 20160413
  5. AFLIBERCEPT [Suspect]
     Active Substance: AFLIBERCEPT
     Dosage: 276 MILLIGRAM, CYCLE
     Route: 042
     Dates: start: 20160511
  6. ZOPHREN                            /00955301/ [Concomitant]
     Active Substance: ONDANSETRON
     Indication: NAUSEA
  7. IRINOTECAN [Suspect]
     Active Substance: IRINOTECAN
     Indication: COLORECTAL CANCER METASTATIC
     Dosage: UNK UNK, CYCLE (UNK UNK, QCY)
     Route: 042
     Dates: start: 20160413, end: 20160413
  8. FLUOROURACIL. [Suspect]
     Active Substance: FLUOROURACIL
     Dosage: 750 MILLIGRAM, CYCLE
     Route: 042
     Dates: start: 20160511, end: 20160511
  9. AFLIBERCEPT [Suspect]
     Active Substance: AFLIBERCEPT
     Indication: COLORECTAL CANCER METASTATIC
     Dosage: UNK, CYCLE (UNK UNK, QCY)
     Route: 042
     Dates: start: 20160413, end: 20160413
  10. ATARAX [Concomitant]
     Active Substance: HYDROXYZINE HYDROCHLORIDE
     Dosage: 50 MG
     Dates: start: 20160413, end: 20170821
  11. EMEND [Concomitant]
     Active Substance: APREPITANT
     Indication: VOMITING
  12. OXYNORM [Concomitant]
     Active Substance: OXYCODONE HYDROCHLORIDE
     Indication: ANALGESIC THERAPY
     Dosage: 10 MG
     Dates: start: 20160413, end: 20170924
  13. FOLINIC ACID [Suspect]
     Active Substance: LEUCOVORIN
     Indication: COLORECTAL CANCER METASTATIC
     Dosage: UNK UNK, CYCLE (UNK UNK, QCY )
     Route: 042
     Dates: start: 20160413, end: 20160413
  14. FOLINIC ACID [Suspect]
     Active Substance: LEUCOVORIN
     Dosage: 748 MILLIGRAM, CYCLE
     Route: 042
     Dates: start: 20160511
  15. ANAFRANIL [Concomitant]
     Active Substance: CLOMIPRAMINE HYDROCHLORIDE
     Dosage: 10 MG
     Dates: start: 20160413

REACTIONS (1)
  - Back pain [Recovered/Resolved]

NARRATIVE: CASE EVENT DATE: 20160519
